FAERS Safety Report 6821828-4 (Version None)
Quarter: 2010Q3

REPORT INFORMATION
  Report Type: 
  Country: None (occurrence: None)
  Receive Date: 20100708
  Receipt Date: 20100628
  Transmission Date: 20110219
  Serious: Yes (Death, Other)
  Sender: FDA-Public Use
  Company Number: US-BIOGENIDEC-2009BI037315

PATIENT
  Age: 67 Year
  Sex: Female

DRUGS (2)
  1. AVONEX [Suspect]
     Indication: MULTIPLE SCLEROSIS
     Route: 030
     Dates: end: 20050114
  2. AVONEX [Suspect]
     Route: 030
     Dates: start: 20050711

REACTIONS (4)
  - FLUID RETENTION [None]
  - MULTI-ORGAN FAILURE [None]
  - RENAL DISORDER [None]
  - SWELLING [None]
